FAERS Safety Report 8972566 (Version 1)
Quarter: 2012Q4

REPORT INFORMATION
  Report Type: 
  Country: CH (occurrence: CH)
  Receive Date: 20121218
  Receipt Date: 20121218
  Transmission Date: 20130627
  Serious: Yes (Other)
  Sender: FDA-Public Use
  Company Number: CH-ELI_LILLY_AND_COMPANY-CH201212004850

PATIENT
  Sex: Female

DRUGS (6)
  1. ZYPREXA [Suspect]
     Indication: SCHIZOPHRENIA, PARANOID TYPE
     Dosage: 7.5 mg, qd
     Route: 048
     Dates: start: 2011
  2. ZYPREXA [Suspect]
     Dosage: 30 mg, qd
  3. ORFIRIL LONG [Concomitant]
     Dosage: 1000 mg, qd
     Route: 048
     Dates: start: 2011, end: 2012
  4. CIPRALEX [Concomitant]
     Dosage: 20 mg, qd
     Route: 048
     Dates: start: 2011
  5. STILNOX [Concomitant]
     Dosage: 12.5 mg, qd
     Route: 048
     Dates: start: 2011
  6. TEMESTA EXPIDET [Concomitant]
     Dosage: 2.5 mg, tid
     Route: 048
     Dates: start: 2011

REACTIONS (2)
  - Exposure during pregnancy [Recovered/Resolved]
  - Overdose [Unknown]
